FAERS Safety Report 9303117 (Version 2)
Quarter: 2013Q2

REPORT INFORMATION
  Report Type: Report from Study
  Country: BR (occurrence: BR)
  Receive Date: 20130522
  Receipt Date: 20130530
  Transmission Date: 20140414
  Serious: Yes (Hospitalization)
  Sender: FDA-Public Use
  Company Number: BR-PFIZER INC-2013153386

PATIENT
  Sex: 0

DRUGS (2)
  1. AMIODARONE HCL [Suspect]
     Dosage: UNK
     Route: 065
  2. AZITHROMYCIN [Interacting]
     Dosage: UNK
     Route: 065

REACTIONS (2)
  - Drug interaction [Unknown]
  - Cardiotoxicity [Unknown]
